FAERS Safety Report 8052158-3 (Version None)
Quarter: 2012Q1

REPORT INFORMATION
  Report Type: 
  Country: None (occurrence: None)
  Receive Date: 20120118
  Receipt Date: 20120113
  Transmission Date: 20120608
  Serious: No
  Sender: FDA-Public Use
  Company Number: US-PFIZER INC-2011103296

PATIENT
  Sex: Female

DRUGS (4)
  1. LEVOTHYROXINE SODIUM [Suspect]
     Route: 048
  2. SINGULAIR [Suspect]
  3. PRISTIQ [Suspect]
     Dosage: UNK
  4. LEVOTHYROXINE SODIUM [Suspect]
     Dosage: UNK

REACTIONS (1)
  - FOOD ALLERGY [None]
